FAERS Safety Report 15243682 (Version 1)
Quarter: 2018Q3

REPORT INFORMATION
  Report Type: Spontaneous
  Country: US (occurrence: US)
  Receive Date: 20180806
  Receipt Date: 20180806
  Transmission Date: 20181010
  Serious: No
  Sender: FDA-Public Use
  Company Number: US-SA-2018SA135602

PATIENT
  Sex: Male

DRUGS (5)
  1. OXYBUTYNIN CHLORIDE. [Concomitant]
     Active Substance: OXYBUTYNIN CHLORIDE
  2. AUBAGIO [Suspect]
     Active Substance: TERIFLUNOMIDE
     Dosage: 14 MG,QD
     Route: 048
     Dates: start: 20131011
  3. AUBAGIO [Suspect]
     Active Substance: TERIFLUNOMIDE
     Dosage: 14 UNK
     Route: 048
     Dates: start: 201801
  4. LORATADINE. [Concomitant]
     Active Substance: LORATADINE
  5. CEFACLOR. [Concomitant]
     Active Substance: CEFACLOR

REACTIONS (2)
  - Surgery [Unknown]
  - White blood cell count decreased [Not Recovered/Not Resolved]
